FAERS Safety Report 4838169-7 (Version None)
Quarter: 2005Q4

REPORT INFORMATION
  Report Type: 
  Country: None (occurrence: None)
  Receive Date: 20051128
  Receipt Date: 20051118
  Transmission Date: 20060501
  Serious: Yes (Hospitalization)
  Sender: FDA-Public Use
  Company Number: ES-ABBOTT-05P-144-0317714-00

PATIENT
  Sex: Female
  Weight: 52.5 kg

DRUGS (7)
  1. ZEMPLAR [Suspect]
     Indication: HYPERPARATHYROIDISM SECONDARY
     Dosage: 4.75
     Route: 042
     Dates: start: 20051101
  2. ACETYLSALICYLIC ACID [Concomitant]
     Indication: TRANSIENT ISCHAEMIC ATTACK
     Dates: start: 20050908
  3. RAMIPRIL [Concomitant]
     Indication: TRANSIENT ISCHAEMIC ATTACK
     Route: 048
     Dates: start: 20050909
  4. FOLIC ACID [Concomitant]
     Indication: PROPHYLAXIS
     Route: 048
     Dates: start: 20050111
  5. VITAMINES-B-LABAZ [Concomitant]
     Indication: PROPHYLAXIS
     Route: 048
     Dates: start: 20050111
  6. EPOTEIN ALFA [Concomitant]
     Indication: ANAEMIA
     Route: 042
     Dates: start: 20051006
  7. ASCORBIC ACID [Concomitant]
     Indication: VITAMIN C DEFICIENCY
     Dates: start: 20050526

REACTIONS (1)
  - CONVULSION [None]
